FAERS Safety Report 24233123 (Version 1)
Quarter: 2024Q3

REPORT INFORMATION
  Report Type: Spontaneous
  Country: ES (occurrence: ES)
  Receive Date: 20240821
  Receipt Date: 20240821
  Transmission Date: 20241017
  Serious: Yes (Other)
  Sender: MERCK KGAA
  Company Number: None

PATIENT
  Age: 30 Year

DRUGS (3)
  1. LEVOTHYROXINE [Interacting]
     Active Substance: LEVOTHYROXINE\LEVOTHYROXINE SODIUM
     Indication: Hypothyroidism
     Route: 048
     Dates: start: 2022
  2. RYBELSUS [Interacting]
     Active Substance: SEMAGLUTIDE
     Indication: Obesity
     Dates: start: 202404, end: 202406
  3. OZEMPIC [Concomitant]
     Active Substance: SEMAGLUTIDE
     Indication: Obesity
     Route: 048
     Dates: start: 202306, end: 202404

REACTIONS (2)
  - Hypothyroidism [Recovered/Resolved]
  - Medication error [Recovered/Resolved]

NARRATIVE: CASE EVENT DATE: 20240401
